FAERS Safety Report 5750603-7 (Version None)
Quarter: 2008Q2

REPORT INFORMATION
  Report Type: 
  Country: None (occurrence: None)
  Receive Date: 20080528
  Receipt Date: 20080521
  Transmission Date: 20081010
  Serious: Yes (Death)
  Sender: FDA-Public Use
  Company Number: KR-BRISTOL-MYERS SQUIBB COMPANY-14205694

PATIENT
  Age: 67 Year
  Sex: Male

DRUGS (14)
  1. CETUXIMAB [Suspect]
     Indication: HEAD AND NECK CANCER
     Dates: start: 20080513
  2. CISPLATIN [Suspect]
     Indication: HEAD AND NECK CANCER
     Route: 042
     Dates: start: 20080513
  3. DOCETAXEL [Suspect]
     Indication: HEAD AND NECK CANCER
     Route: 042
     Dates: start: 20080513
  4. ACETYLSALICYLIC ACID SRT [Concomitant]
     Dates: start: 20070305
  5. ISOSORBIDE DINITRATE [Concomitant]
  6. CARVEDILOL [Concomitant]
  7. DILTIAZEM HCL [Concomitant]
  8. LEVODROPROPIZINE [Concomitant]
  9. ACETAMINOPHEN [Concomitant]
  10. METOCLOPRAMIDE HCL [Concomitant]
  11. DEXAMETHASONE TAB [Concomitant]
  12. FLUCONAZOLE [Concomitant]
  13. AMINO ACIDS W/DEXTROSE [Concomitant]
  14. LIPIDS [Concomitant]

REACTIONS (3)
  - ASTHENIA [None]
  - DYSPNOEA [None]
  - RESPIRATORY ARREST [None]
